FAERS Safety Report 25175321 (Version 1)
Quarter: 2025Q2

REPORT INFORMATION
  Report Type: Spontaneous
  Country: PT (occurrence: PT)
  Receive Date: 20250408
  Receipt Date: 20250408
  Transmission Date: 20250716
  Serious: Yes (Life-Threatening, Hospitalization, Other)
  Sender: PURDUE
  Company Number: PT-NAPPMUNDI-GBR-2025-0124716

PATIENT
  Age: 74 Year
  Sex: Male

DRUGS (2)
  1. MORPHINE SULFATE [Suspect]
     Active Substance: MORPHINE SULFATE
     Indication: Spinal anaesthesia
     Route: 038
  2. MORPHINE SULFATE [Suspect]
     Active Substance: MORPHINE SULFATE
     Indication: Spinal anaesthesia
     Route: 038

REACTIONS (3)
  - Distributive shock [Recovered/Resolved]
  - Haemodynamic instability [Recovered/Resolved]
  - Shock haemorrhagic [Recovered/Resolved]
